FAERS Safety Report 17374091 (Version 1)
Quarter: 2020Q1

REPORT INFORMATION
  Report Type: Spontaneous
  Country: US (occurrence: US)
  Receive Date: 20200205
  Receipt Date: 20200205
  Transmission Date: 20200409
  Serious: No
  Sender: FDA-Public Use
  Company Number: US-BAUSCH-BL-2020-002148

PATIENT
  Age: 45 Year
  Sex: Male

DRUGS (6)
  1. FISH OIL [Concomitant]
     Active Substance: FISH OIL
     Indication: PRODUCT USED FOR UNKNOWN INDICATION
  2. CLARITIN [Concomitant]
     Active Substance: LORATADINE
     Indication: PRODUCT USED FOR UNKNOWN INDICATION
  3. SAW PALMETTO [Concomitant]
     Active Substance: HERBALS\SAW PALMETTO
     Indication: PRODUCT USED FOR UNKNOWN INDICATION
  4. ALAWAY [Suspect]
     Active Substance: KETOTIFEN FUMARATE
     Indication: EYE PRURITUS
     Dosage: STARTED APPROXIMATELY ONE WEEK AGO, ONE DROP IN BOTH EYES
     Route: 047
     Dates: start: 202001
  5. MULTIVITAMINS [Concomitant]
     Active Substance: VITAMINS
     Indication: PRODUCT USED FOR UNKNOWN INDICATION
  6. VITAMIN D [Concomitant]
     Active Substance: VITAMIN D NOS
     Indication: PRODUCT USED FOR UNKNOWN INDICATION

REACTIONS (3)
  - Eye irritation [Unknown]
  - Inappropriate schedule of product administration [Unknown]
  - Product prescribing error [Unknown]

NARRATIVE: CASE EVENT DATE: 202001
